FAERS Safety Report 8803941 (Version 1)
Quarter: 2012Q4

REPORT INFORMATION
  Report Type: 
  Country: US (occurrence: US)
  Receive Date: 20120924
  Receipt Date: 20120924
  Transmission Date: 20130627
  Serious: No
  Sender: FDA-Public Use
  Company Number: US-PFIZER INC-2012234737

PATIENT
  Age: 79 Year
  Sex: Female
  Weight: 58.96 kg

DRUGS (5)
  1. LYRICA [Suspect]
     Indication: MUSCULOSKELETAL PAIN
     Dosage: 50 mg, 2x/day
     Dates: start: 20120822
  2. LYRICA [Suspect]
     Indication: PAIN IN EXTREMITY
  3. EVISTA [Concomitant]
     Dosage: 60 mg, daily
  4. CELEBREX [Concomitant]
     Indication: MUSCULOSKELETAL PAIN
     Dosage: 250 mg, 2x/day
  5. CELEBREX [Concomitant]
     Indication: PAIN IN EXTREMITY

REACTIONS (1)
  - Drug effect incomplete [Unknown]
